FAERS Safety Report 9630111 (Version 2)
Quarter: 2013Q4

REPORT INFORMATION
  Report Type: Spontaneous
  Country: US (occurrence: US)
  Receive Date: 20131017
  Receipt Date: 20131023
  Transmission Date: 20140711
  Serious: Yes (Hospitalization, Other)
  Sender: FDA-Public Use
  Company Number: US-GILEAD-2013-0085673

PATIENT
  Age: 84 Year
  Sex: Male

DRUGS (1)
  1. RANEXA [Suspect]
     Dosage: 1000 MG, BID
     Route: 048
     Dates: start: 2012

REACTIONS (11)
  - Blood pressure increased [Unknown]
  - Deafness [Unknown]
  - Nausea [Recovering/Resolving]
  - Dizziness [Recovering/Resolving]
  - Dizziness [Recovering/Resolving]
  - Gait disturbance [Recovering/Resolving]
  - Fall [Unknown]
  - Contusion [Unknown]
  - Blood creatinine increased [Unknown]
  - Blood calcium increased [Unknown]
  - Constipation [Not Recovered/Not Resolved]
